FAERS Safety Report 9615010 (Version 1)
Quarter: 2013Q4

REPORT INFORMATION
  Report Type: Spontaneous
  Country: DE (occurrence: DE)
  Receive Date: 20131011
  Receipt Date: 20131011
  Transmission Date: 20140711
  Serious: Yes (Hospitalization)
  Sender: FDA-Public Use
  Company Number: DE-VERTEX PHARMACEUTICALS INC-2013-010289

PATIENT
  Sex: Male

DRUGS (8)
  1. INCIVO [Suspect]
     Indication: CHRONIC HEPATITIS C
     Route: 048
     Dates: start: 20120305
  2. PEGINTERFERON ALFA 2A [Suspect]
     Indication: CHRONIC HEPATITIS C
     Dosage: 180 ?G, QW
     Route: 058
     Dates: start: 20120305
  3. RIBAVIRIN [Suspect]
     Indication: CHRONIC HEPATITIS C
     Dosage: UNK
     Route: 065
     Dates: start: 20120305
  4. OXYGESIC [Concomitant]
     Indication: OSTEOARTHRITIS
     Dosage: UNK
     Route: 048
  5. RAMIPRIL [Concomitant]
     Indication: HYPERTENSION
     Dosage: UNK
     Route: 048
  6. PANTOZOL [Concomitant]
     Dosage: UNK (20 UNITS UNSPECIFIED)
     Route: 048
  7. LEVOCETIRIZINE [Concomitant]
     Indication: PRURITUS
     Dosage: UNK (5 UNITS UNSPECIFIED)
     Route: 048
     Dates: start: 20121101
  8. ALLOPURINOL [Concomitant]
     Indication: HYPERURICAEMIA
     Dosage: 1 DF, QD
     Route: 048

REACTIONS (1)
  - Musculoskeletal discomfort [Recovered/Resolved]
